FAERS Safety Report 9356538 (Version 1)
Quarter: 2013Q2

REPORT INFORMATION
  Report Type: Spontaneous
  Country: DE (occurrence: None)
  Receive Date: 20130614
  Receipt Date: 20130614
  Transmission Date: 20140414
  Serious: Yes (Other)
  Sender: FDA-Public Use
  Company Number: INT_00265_2013

PATIENT
  Age: 8 Year
  Sex: 0

DRUGS (1)
  1. CEFAZOLIN (CEFAZOLIN) [Suspect]
     Indication: PRODUCT USED FOR UNKNOWN INDICATION
     Dosage: DF PRE-OPERATIVELY

REACTIONS (1)
  - Tonic convulsion [None]
